FAERS Safety Report 5353271-1 (Version None)
Quarter: 2007Q2

REPORT INFORMATION
  Report Type: 
  Country: None (occurrence: None)
  Receive Date: 20070518
  Receipt Date: 20070205
  Transmission Date: 20071010
  Serious: No
  Sender: FDA-Public Use
  Company Number: TPA2007A00300

PATIENT
  Age: 38 Year
  Sex: Male

DRUGS (9)
  1. ROZEREM [Suspect]
     Indication: INSOMNIA
     Dosage: SEE IMAGE
     Route: 048
     Dates: start: 20060101, end: 20060601
  2. ROZEREM [Suspect]
     Indication: INSOMNIA
     Dosage: SEE IMAGE
     Route: 048
     Dates: start: 20060601, end: 20070122
  3. ROZEREM [Suspect]
     Indication: INSOMNIA
     Dosage: SEE IMAGE
     Route: 048
     Dates: start: 20070122
  4. SEROQUEL [Concomitant]
  5. PROLIXIN [Concomitant]
  6. DEPAKOTE [Concomitant]
  7. DESYREL [Concomitant]
  8. ZOLOFT [Concomitant]
  9. COGENTIN [Concomitant]

REACTIONS (5)
  - CONDITION AGGRAVATED [None]
  - MENTAL DISORDER [None]
  - OBSESSIVE-COMPULSIVE DISORDER [None]
  - POOR QUALITY SLEEP [None]
  - PRESCRIBED OVERDOSE [None]
